FAERS Safety Report 10267130 (Version 1)
Quarter: 2014Q2

REPORT INFORMATION
  Report Type: Spontaneous
  Country: US (occurrence: None)
  Receive Date: 20140625
  Receipt Date: 20140625
  Transmission Date: 20141212
  Serious: Yes (Disabling)
  Sender: FDA-Public Use
  Company Number: None

PATIENT
  Age: 58 Year
  Sex: Male
  Weight: 108.86 kg

DRUGS (1)
  1. AMITRIPTYLINE 25MG QUALITIES [Suspect]
     Indication: PAIN
     Dosage: 1 PILL, AT BEDTIME, TAKEN BY MOUTH
     Route: 048
     Dates: start: 20140520, end: 20140524

REACTIONS (5)
  - Headache [None]
  - Pyrexia [None]
  - Palpitations [None]
  - Insomnia [None]
  - Feeling abnormal [None]
